FAERS Safety Report 5028063-3 (Version None)
Quarter: 2006Q2

REPORT INFORMATION
  Report Type: 
  Country: None (occurrence: None)
  Receive Date: 20060612
  Receipt Date: 20060601
  Transmission Date: 20061013
  Serious: Yes (Hospitalization)
  Sender: FDA-Public Use
  Company Number: 2006070487

PATIENT
  Age: 30 Year
  Sex: Female

DRUGS (1)
  1. NICOTINE [Suspect]
     Dosage: TRANSDERMAL
     Route: 062

REACTIONS (4)
  - DRUG TOXICITY [None]
  - OEDEMATOUS PANCREATITIS [None]
  - OVERDOSE [None]
  - TREATMENT NONCOMPLIANCE [None]
